FAERS Safety Report 14462987 (Version 1)
Quarter: 2018Q1

REPORT INFORMATION
  Report Type: Spontaneous
  Country: NL (occurrence: NL)
  Receive Date: 20180130
  Receipt Date: 20180130
  Transmission Date: 20180509
  Serious: Yes (Life-Threatening)
  Sender: FDA-Public Use
  Company Number: NL-ALLERGAN-1804259US

PATIENT
  Age: 83 Year
  Sex: Female

DRUGS (1)
  1. MESALAZINE UNK [Suspect]
     Active Substance: MESALAMINE
     Indication: COLITIS ULCERATIVE
     Dosage: UNK, QD
     Route: 065
     Dates: start: 201712, end: 20180102

REACTIONS (5)
  - Diarrhoea [Recovered/Resolved]
  - Hypovolaemic shock [Recovered/Resolved]
  - Renal failure [Recovered/Resolved]
  - Multiple organ dysfunction syndrome [Recovered/Resolved]
  - Hypovolaemia [Recovered/Resolved]

NARRATIVE: CASE EVENT DATE: 20180102
